FAERS Safety Report 10111448 (Version 2)
Quarter: 2014Q3

REPORT INFORMATION
  Report Type: Spontaneous
  Country: US (occurrence: None)
  Receive Date: 20140421
  Receipt Date: 20140722
  Transmission Date: 20150326
  Serious: Yes (Other)
  Sender: FDA-Public Use
  Company Number: AEGR000320

PATIENT
  Age: 41 Year
  Sex: Female
  Weight: 121.1 kg

DRUGS (3)
  1. LOVAZA (OMEGA-3 ACID ETHYL ESTER) [Concomitant]
  2. JUXTAPID [Suspect]
     Active Substance: LOMITAPIDE MESYLATE
     Indication: TYPE IIA HYPERLIPIDAEMIA
     Route: 048
     Dates: start: 20131203, end: 20140219
  3. ATORVASTATIN (ATORVASTATIN CALCIUM) [Concomitant]

REACTIONS (2)
  - Nausea [None]
  - Muscle spasms [None]
